FAERS Safety Report 5744670-4 (Version None)
Quarter: 2008Q2

REPORT INFORMATION
  Report Type: 
  Country: None (occurrence: None)
  Receive Date: 20080520
  Receipt Date: 20080508
  Transmission Date: 20081010
  Serious: Yes (Life-Threatening)
  Sender: FDA-Public Use
  Company Number: US-PFIZER INC-2005069238

PATIENT
  Sex: Female
  Weight: 54 kg

DRUGS (8)
  1. SU-011,248 [Suspect]
     Indication: GASTROINTESTINAL STROMAL TUMOUR
     Route: 048
  2. CARAFATE [Concomitant]
     Route: 048
  3. COLACE [Concomitant]
     Route: 048
  4. MILK OF MAGNESIA [Concomitant]
     Route: 048
  5. MYLANTA [Concomitant]
     Route: 048
  6. PRILOSEC [Concomitant]
     Dosage: DAILY DOSE:20MG
     Route: 048
  7. REGLAN [Concomitant]
     Route: 048
  8. TYLENOL [Concomitant]
     Dosage: DAILY DOSE:10MG
     Route: 048
     Dates: start: 20040607, end: 20040609

REACTIONS (1)
  - PNEUMATOSIS [None]
